FAERS Safety Report 7087141-8 (Version None)
Quarter: 2010Q4

REPORT INFORMATION
  Report Type: 
  Country: None (occurrence: None)
  Receive Date: 20101106
  Receipt Date: 20101028
  Transmission Date: 20110411
  Serious: No
  Sender: FDA-Public Use
  Company Number: US-WYE-H18440210

PATIENT
  Age: 52 Year
  Weight: 88.98 kg

DRUGS (1)
  1. EFFEXOR [Suspect]
     Dosage: UNKNOWN
     Dates: start: 20000101

REACTIONS (1)
  - DRUG WITHDRAWAL SYNDROME [None]
